FAERS Safety Report 17293091 (Version 4)
Quarter: 2020Q2

REPORT INFORMATION
  Report Type: Spontaneous
  Country: GB (occurrence: GB)
  Receive Date: 20200121
  Receipt Date: 20200422
  Transmission Date: 20200713
  Serious: Yes (Hospitalization, Other)
  Sender: FDA-Public Use
  Company Number: NVSC2020GB008772

PATIENT
  Age: 41 Year
  Sex: Female

DRUGS (6)
  1. ENOXAPARIN SODIUM. [Suspect]
     Active Substance: ENOXAPARIN SODIUM
     Indication: ANTICOAGULANT THERAPY
     Route: 058
  2. FLUDARABINE PHOSPHATE. [Suspect]
     Active Substance: FLUDARABINE PHOSPHATE
     Indication: ACUTE MYELOMONOCYTIC LEUKAEMIA
     Dosage: UNK UNK, QCY
     Route: 065
  3. GEMTUZUMAB OZOGAMICIN [Suspect]
     Active Substance: GEMTUZUMAB OZOGAMICIN
     Indication: ACUTE MYELOMONOCYTIC LEUKAEMIA
     Dosage: UNK
     Route: 058
  4. DESOGESTREL [Suspect]
     Active Substance: DESOGESTREL
     Indication: ORAL CONTRACEPTION
     Dosage: PILL
     Route: 048
  5. IDARUBICIN [Suspect]
     Active Substance: IDARUBICIN
     Indication: ACUTE MYELOMONOCYTIC LEUKAEMIA
     Dosage: UNK UNK, CYCLIC
     Route: 065
  6. CYTARABINE. [Suspect]
     Active Substance: CYTARABINE
     Indication: ACUTE MYELOMONOCYTIC LEUKAEMIA
     Dosage: UNK, UNK CYCLIC
     Route: 065

REACTIONS (9)
  - Back pain [Unknown]
  - Haemorrhagic ovarian cyst [Unknown]
  - Haemodynamic instability [Unknown]
  - Abdominal pain lower [Unknown]
  - Pain [Unknown]
  - Thrombocytopenia [Unknown]
  - Pulmonary embolism [Unknown]
  - Dysuria [Unknown]
  - Abdominal pain [Unknown]
